FAERS Safety Report 7272341-4 (Version None)
Quarter: 2011Q1

REPORT INFORMATION
  Report Type: 
  Country: None (occurrence: None)
  Receive Date: 20110203
  Receipt Date: 20110125
  Transmission Date: 20110831
  Serious: Yes (Death, Other)
  Sender: FDA-Public Use
  Company Number: US-GENZYME-FLUD-1000469

PATIENT
  Age: 23 Year
  Sex: Male

DRUGS (3)
  1. CYCLOPHOSPHAMIDE [Suspect]
     Indication: SYSTEMIC LUPUS ERYTHEMATOSUS
     Dosage: 1.2 G/M2, QDX4
     Route: 065
  2. RITUXIMAB [Suspect]
     Indication: SYSTEMIC LUPUS ERYTHEMATOSUS
     Dosage: 750 MG/M2, UNK
     Route: 065
  3. FLUDARA [Suspect]
     Indication: SYSTEMIC LUPUS ERYTHEMATOSUS
     Dosage: 30 MG/M2, QDX4
     Route: 065

REACTIONS (8)
  - BRAIN HERNIATION [None]
  - GLIOSIS [None]
  - DEPRESSED LEVEL OF CONSCIOUSNESS [None]
  - BLINDNESS [None]
  - HYDROCEPHALUS [None]
  - DEATH [None]
  - DEMYELINATION [None]
  - CONFUSIONAL STATE [None]
